FAERS Safety Report 5850930-9 (Version None)
Quarter: 2008Q3

REPORT INFORMATION
  Report Type: 
  Country: None (occurrence: None)
  Receive Date: 20080820
  Receipt Date: 20080815
  Transmission Date: 20090109
  Serious: Yes (Life-Threatening, Hospitalization, Other)
  Sender: FDA-Public Use
  Company Number: PHHY2008CH18034

PATIENT
  Sex: Male

DRUGS (10)
  1. CLOZAPINE [Suspect]
     Dosage: 500 MG/DAY
     Route: 048
     Dates: start: 20060701, end: 20080406
  2. COPEGUS [Suspect]
     Dosage: 400 MG, BID
     Route: 048
     Dates: start: 20071006, end: 20080329
  3. PEGASYS [Suspect]
     Dosage: 180 UG, QW
     Route: 058
     Dates: start: 20071006, end: 20080329
  4. REMERON [Suspect]
     Dosage: 30 MG/DAY
     Route: 048
     Dates: start: 20071119
  5. HALDOL [Concomitant]
     Dosage: UNK
     Dates: end: 20080101
  6. TEMESTA [Concomitant]
     Dosage: 1 MG
     Route: 048
     Dates: start: 20060801
  7. AKINETON [Concomitant]
     Dosage: UNK
     Dates: end: 20080101
  8. ZYPREXA [Concomitant]
     Dosage: UNK
  9. NEXIUM [Concomitant]
     Dosage: UNK
  10. IMOVANE [Concomitant]
     Dosage: UNK

REACTIONS (4)
  - AGRANULOCYTOSIS [None]
  - HEPATITIS C [None]
  - LEUKOPENIA [None]
  - SUICIDE ATTEMPT [None]
